FAERS Safety Report 5990578-9 (Version None)
Quarter: 2008Q4

REPORT INFORMATION
  Report Type: 
  Country: None (occurrence: None)
  Receive Date: 20081209
  Receipt Date: 20081124
  Transmission Date: 20090506
  Serious: Yes (Hospitalization)
  Sender: FDA-Public Use
  Company Number: KV200800641

PATIENT
  Age: 78 Year
  Sex: Male
  Weight: 79.4 kg

DRUGS (8)
  1. ISOSORBIDE MONONITRATE [Suspect]
     Indication: CARDIAC DISORDER
     Dosage: 30 MG, QD, ORAL
     Route: 048
     Dates: start: 20060101
  2. ISOSORBIDE MONONITRATE [Suspect]
     Indication: HEART RATE ABNORMAL
     Dosage: 30 MG, QD, ORAL
     Route: 048
     Dates: start: 20060101
  3. ZOCOR [Concomitant]
  4. FLOMAX /00889901/ (MORNIFLUMATE) [Concomitant]
  5. FINASTERIDE [Concomitant]
  6. CARVEDILOL [Concomitant]
  7. ASPIRIN [Concomitant]
  8. METFORMIN HCL [Concomitant]

REACTIONS (4)
  - CHEST DISCOMFORT [None]
  - CHEST PAIN [None]
  - DIZZINESS [None]
  - PRODUCT QUALITY ISSUE [None]
